FAERS Safety Report 22596028 (Version 2)
Quarter: 2023Q2

REPORT INFORMATION
  Report Type: Report from Study
  Country: DE (occurrence: DE)
  Receive Date: 20230613
  Receipt Date: 20230622
  Transmission Date: 20230722
  Serious: Yes (Death, Other)
  Sender: FDA-Public Use
  Company Number: DE-JNJFOC-20230619929

PATIENT
  Age: 80 Year
  Sex: Female
  Weight: 50 kg

DRUGS (2)
  1. TECLISTAMAB [Suspect]
     Active Substance: TECLISTAMAB
     Indication: Plasma cell myeloma refractory
     Dosage: STEP UP DOSE-1
     Route: 058
     Dates: start: 20230522, end: 20230522
  2. TECLISTAMAB [Suspect]
     Active Substance: TECLISTAMAB
     Dosage: STEP UP DOSE-2
     Route: 058
     Dates: start: 20230524, end: 20230524

REACTIONS (4)
  - Immune effector cell-associated neurotoxicity syndrome [Fatal]
  - Pneumonia [Fatal]
  - Renal failure [Fatal]
  - Cytokine release syndrome [Unknown]

NARRATIVE: CASE EVENT DATE: 20230101
